FAERS Safety Report 5753059-3 (Version None)
Quarter: 2008Q2

REPORT INFORMATION
  Report Type: 
  Country: None (occurrence: None)
  Receive Date: 20080527
  Receipt Date: 20080509
  Transmission Date: 20081010
  Serious: Yes (Hospitalization)
  Sender: FDA-Public Use
  Company Number: FACT0800096

PATIENT
  Age: 28 Year
  Sex: Female

DRUGS (1)
  1. FACTIVE [Suspect]
     Indication: PNEUMONIA
     Dosage: QD
     Dates: start: 20071122, end: 20071128

REACTIONS (1)
  - STEVENS-JOHNSON SYNDROME [None]
